FAERS Safety Report 11148856 (Version 1)
Quarter: 2015Q2

REPORT INFORMATION
  Report Type: Report from Study
  Country: US (occurrence: US)
  Receive Date: 20150529
  Receipt Date: 20150529
  Transmission Date: 20150821
  Serious: Yes (Death, Other)
  Sender: FDA-Public Use
  Company Number: US-ROCHE-1585707

PATIENT
  Age: 68 Year
  Sex: Female

DRUGS (3)
  1. LENALIDOMIDE [Suspect]
     Active Substance: LENALIDOMIDE
     Indication: LYMPHOMA
     Dosage: DAYS 8-21 CYCLE 1, DAYS 1-21 THEREAFTER.
     Route: 065
  2. IDELALISIB [Suspect]
     Active Substance: IDELALISIB
     Indication: LYMPHOMA
     Dosage: FROM DAY 1 (CYCLE 1, 35 DAYS; SUBSEQUENT CYCLES, 28 DAYS).
     Route: 065
  3. RITUXIMAB [Suspect]
     Active Substance: RITUXIMAB
     Indication: B-CELL LYMPHOMA
     Dosage: ON DAY 1
     Route: 042

REACTIONS (3)
  - Respiratory failure [Fatal]
  - Septic shock [Unknown]
  - Alanine aminotransferase increased [Unknown]
